FAERS Safety Report 13424015 (Version 1)
Quarter: 2017Q2

REPORT INFORMATION
  Report Type: Spontaneous
  Country: US (occurrence: US)
  Receive Date: 20170410
  Receipt Date: 20170410
  Transmission Date: 20170830
  Serious: Yes (Other)
  Sender: FDA-Public Use
  Company Number: US-DEPOMED, INC.-US-2017DEP000698

PATIENT

DRUGS (4)
  1. GRALISE [Suspect]
     Active Substance: GABAPENTIN
     Indication: INTERVERTEBRAL DISC PROTRUSION
  2. GRALISE [Suspect]
     Active Substance: GABAPENTIN
     Indication: NEURALGIA
  3. GRALISE [Suspect]
     Active Substance: GABAPENTIN
     Indication: BACK DISORDER
     Dosage: TITRATED FROM 300 MG
     Route: 048
     Dates: start: 20170321, end: 20170324
  4. OXYCODONE [Concomitant]
     Active Substance: OXYCODONE
     Indication: PAIN
     Dosage: 10/325 MG, QID
     Route: 048
     Dates: start: 2010

REACTIONS (2)
  - Panic attack [Not Recovered/Not Resolved]
  - Product use in unapproved indication [Recovered/Resolved]

NARRATIVE: CASE EVENT DATE: 20170321
